FAERS Safety Report 8392462-2 (Version None)
Quarter: 2012Q2

REPORT INFORMATION
  Report Type: 
  Country: None (occurrence: None)
  Receive Date: 20120529
  Receipt Date: 20120522
  Transmission Date: 20120825
  Serious: No
  Sender: FDA-Public Use
  Company Number: US-PFIZER INC-2012123869

PATIENT
  Sex: Female

DRUGS (11)
  1. MEDROL [Suspect]
     Dosage: UNK
     Dates: end: 20120501
  2. METHYLPREDNISOLONE [Suspect]
     Indication: ASTHMA
     Dosage: 4MG TABLETS AT AN UNK DOSE AND FREQUENCY
     Route: 048
     Dates: start: 20120515
  3. METHYLPREDNISOLONE [Suspect]
     Dosage: 16 MG/DAY
     Route: 048
  4. METHYLPREDNISOLONE [Suspect]
     Dosage: 8 MG/DAY
     Route: 048
  5. MEDROL [Suspect]
     Indication: ASTHMA
     Dosage: 100 MG IN A DAY (UNK DOSE AND FREQUENCY)
  6. METHYLPREDNISOLONE [Suspect]
     Dosage: 60 MG/DAY
     Route: 048
  7. PREDNISONE [Suspect]
     Indication: ASTHMA
     Dosage: 100 MG/DAY (UNK DOSE AND FREQUENCY)
  8. PREDNISONE [Suspect]
     Dosage: UNK
  9. ADVIL [Concomitant]
     Indication: HEADACHE
     Dosage: UNK
  10. METHYLPREDNISOLONE [Suspect]
     Dosage: 100 MG/DAY ON FIRST DAY
     Route: 048
  11. METHYLPREDNISOLONE [Suspect]
     Dosage: 50 MG/DAY
     Route: 048

REACTIONS (5)
  - WEIGHT DECREASED [None]
  - BONE PAIN [None]
  - CUSHINGOID [None]
  - CONTUSION [None]
  - SWELLING FACE [None]
